FAERS Safety Report 7653967-2 (Version None)
Quarter: 2011Q3

REPORT INFORMATION
  Report Type: 
  Country: None (occurrence: None)
  Receive Date: 20110803
  Receipt Date: 20110728
  Transmission Date: 20111222
  Serious: Yes (Death)
  Sender: FDA-Public Use
  Company Number: EG-PFIZER INC-2011172339

PATIENT
  Age: 50 Year
  Sex: Female

DRUGS (1)
  1. TYGACIL [Suspect]
     Dosage: 100 MG, 1X/DAY
     Route: 042

REACTIONS (1)
  - DEATH [None]
